FAERS Safety Report 10154041 (Version 2)
Quarter: 2014Q3

REPORT INFORMATION
  Report Type: Spontaneous
  Country: US (occurrence: US)
  Receive Date: 20140506
  Receipt Date: 20140918
  Transmission Date: 20150326
  Serious: Yes (Hospitalization)
  Sender: FDA-Public Use
  Company Number: US-INDICUS PHARMA-000251

PATIENT
  Age: 2 Year
  Sex: Female

DRUGS (4)
  1. ORLISTAT [Concomitant]
     Active Substance: ORLISTAT
  2. PARACETAMOL [Concomitant]
     Active Substance: ACETAMINOPHEN
  3. MEMANTINE HYDROCHLORIDE [Suspect]
     Active Substance: MEMANTINE HYDROCHLORIDE
  4. DONEPEZIL/DONEPEZIL HYDROCHLORIDE [Suspect]
     Active Substance: DONEPEZIL

REACTIONS (9)
  - Heart rate increased [None]
  - Hallucination, visual [None]
  - Encephalopathy [Recovered/Resolved]
  - Respiratory rate increased [None]
  - Sedation [None]
  - Dystonia [None]
  - Eye movement disorder [None]
  - Blood pressure decreased [None]
  - Accidental exposure to product [Unknown]
